FAERS Safety Report 7285559-1 (Version None)
Quarter: 2011Q1

REPORT INFORMATION
  Report Type: 
  Country: None (occurrence: None)
  Receive Date: 20110131
  Receipt Date: 20110120
  Transmission Date: 20110831
  Serious: Yes (Death, Life-Threatening, Disabling)
  Sender: FDA-Public Use
  Company Number: 2011SP002956

PATIENT
  Age: 48 Year
  Sex: Male

DRUGS (1)
  1. INTEGRILIN [Suspect]
     Indication: MYOCARDIAL INFARCTION
     Dosage: ;IV
     Route: 042
     Dates: start: 20110112

REACTIONS (1)
  - THORACIC HAEMORRHAGE [None]
